FAERS Safety Report 5375763-1 (Version None)
Quarter: 2007Q2

REPORT INFORMATION
  Report Type: 
  Country: None (occurrence: None)
  Receive Date: 20070628
  Receipt Date: 20070615
  Transmission Date: 20071010
  Serious: Yes (Hospitalization)
  Sender: FDA-Public Use
  Company Number: US-CVT-070114

PATIENT
  Age: 68 Year
  Sex: Male

DRUGS (9)
  1. RANEXA [Suspect]
     Indication: ANGINA PECTORIS
     Dosage: SEE IMAGE
     Route: 048
     Dates: start: 20070502, end: 20070520
  2. RANEXA [Suspect]
     Indication: ANGINA PECTORIS
     Dosage: SEE IMAGE
     Route: 048
     Dates: start: 20070521, end: 20070614
  3. RANEXA [Suspect]
     Indication: ANGINA PECTORIS
     Dosage: SEE IMAGE
     Route: 048
     Dates: start: 20070614
  4. NIASPAN [Concomitant]
  5. VYTORIN [Concomitant]
  6. PROTONIX /01263201/ (PANTOPRAZOLE) [Concomitant]
  7. TOPROL-XL [Concomitant]
  8. PLAVIX [Concomitant]
  9. FOLIC ACID W/VITAMIN B NOS (FOLIC ACID, VITAMIN B NOS) [Concomitant]

REACTIONS (9)
  - ACUTE RESPIRATORY DISTRESS SYNDROME [None]
  - ANAEMIA [None]
  - METASTASES TO LYMPH NODES [None]
  - METASTASIS [None]
  - MYOCARDIAL INFARCTION [None]
  - NEOPLASM RECURRENCE [None]
  - PANCREATITIS [None]
  - PNEUMONIA ASPIRATION [None]
  - URINE COLOUR ABNORMAL [None]
